FAERS Safety Report 5551160-0 (Version None)
Quarter: 2007Q4

REPORT INFORMATION
  Report Type: 
  Country: None (occurrence: None)
  Receive Date: 20071212
  Receipt Date: 20070523
  Transmission Date: 20080405
  Serious: No
  Sender: FDA-Public Use
  Company Number: US-AMGEN-KDL226253

PATIENT
  Sex: Female

DRUGS (1)
  1. ENBREL [Suspect]
     Indication: RHEUMATOID ARTHRITIS
     Route: 058
     Dates: start: 20020101

REACTIONS (9)
  - ASTHENIA [None]
  - BRONCHITIS [None]
  - CHEST PAIN [None]
  - DYSPNOEA [None]
  - INJECTION SITE BRUISING [None]
  - MALAISE [None]
  - PRODUCTIVE COUGH [None]
  - RHEUMATOID ARTHRITIS [None]
  - WHITE BLOOD CELL COUNT INCREASED [None]
